FAERS Safety Report 16250607 (Version 1)
Quarter: 2019Q2

REPORT INFORMATION
  Report Type: Spontaneous
  Country: NL (occurrence: NL)
  Receive Date: 20190429
  Receipt Date: 20190429
  Transmission Date: 20190711
  Serious: Yes (Life-Threatening, Hospitalization, Other)
  Sender: FDA-Public Use
  Company Number: NL-MYLANLABS-2019M1039520

PATIENT
  Age: 58 Year
  Sex: Male

DRUGS (2)
  1. VENLAFAXINE [Suspect]
     Active Substance: VENLAFAXINE HYDROCHLORIDE
     Indication: PRODUCT USED FOR UNKNOWN INDICATION
     Route: 065
  2. BACLOFEN. [Suspect]
     Active Substance: BACLOFEN
     Indication: PRODUCT USED FOR UNKNOWN INDICATION
     Route: 065

REACTIONS (12)
  - Intentional overdose [Recovering/Resolving]
  - Electrocardiogram QRS complex prolonged [Unknown]
  - Delirium [Not Recovered/Not Resolved]
  - Electrocardiogram T wave inversion [Unknown]
  - Brain stem syndrome [Recovered/Resolved]
  - Toxicity to various agents [Recovering/Resolving]
  - Loss of consciousness [Recovering/Resolving]
  - Areflexia [Recovered/Resolved]
  - Bradypnoea [Recovering/Resolving]
  - Withdrawal syndrome [Recovering/Resolving]
  - Agitation [Recovering/Resolving]
  - QRS axis abnormal [Unknown]
